FAERS Safety Report 7279145-7 (Version None)
Quarter: 2011Q1

REPORT INFORMATION
  Report Type: 
  Country: None (occurrence: None)
  Receive Date: 20110207
  Receipt Date: 20110128
  Transmission Date: 20110831
  Serious: Yes (Life-Threatening)
  Sender: FDA-Public Use
  Company Number: IT-CELGENEUS-083-21880-11012980

PATIENT
  Sex: Male

DRUGS (9)
  1. PANTECTA [Concomitant]
     Route: 065
  2. REVLIMID [Suspect]
     Indication: MULTIPLE MYELOMA
     Route: 048
     Dates: start: 20110119
  3. PROVISACOR [Concomitant]
     Route: 065
  4. VALACICLOVIR [Concomitant]
     Route: 065
  5. LOSAZID [Concomitant]
     Route: 065
  6. ALLOPURINOL [Concomitant]
     Route: 065
  7. CLEXANE [Concomitant]
     Route: 065
  8. KEPPRA [Concomitant]
     Route: 065
  9. BACTRIM [Concomitant]
     Route: 065

REACTIONS (2)
  - PYREXIA [None]
  - DYSPNOEA [None]
